FAERS Safety Report 5245155-4 (Version None)
Quarter: 2007Q1

REPORT INFORMATION
  Report Type: 
  Country: None (occurrence: None)
  Receive Date: 20070223
  Receipt Date: 20070212
  Transmission Date: 20070707
  Serious: Yes (Other)
  Sender: FDA-Public Use
  Company Number: GB-ROCHE-452886

PATIENT
  Sex: Male

DRUGS (1)
  1. ROFERON-A [Suspect]
     Route: 065

REACTIONS (1)
  - THORACOTOMY [None]
